FAERS Safety Report 5010099-X (Version None)
Quarter: 2006Q2

REPORT INFORMATION
  Report Type: 
  Country: None (occurrence: None)
  Receive Date: 20060404
  Receipt Date: 20051117
  Transmission Date: 20061013
  Serious: No
  Sender: FDA-Public Use
  Company Number: US200511001696

PATIENT
  Sex: Female

DRUGS (2)
  1. CYMBALTA [Suspect]
     Indication: MAJOR DEPRESSION
     Dosage: 30 MG, ORAL
     Route: 048
     Dates: start: 20051110
  2. PROZAC [Suspect]
     Indication: MAJOR DEPRESSION
     Dosage: ORAL
     Route: 048
     Dates: start: 20020101

REACTIONS (8)
  - ASTHENIA [None]
  - DEHYDRATION [None]
  - DIARRHOEA [None]
  - DISORIENTATION [None]
  - FEELING ABNORMAL [None]
  - SEXUAL DYSFUNCTION [None]
  - SUICIDAL IDEATION [None]
  - WEIGHT INCREASED [None]
